FAERS Safety Report 20460560 (Version 1)
Quarter: 2022Q1

REPORT INFORMATION
  Report Type: Spontaneous
  Country: FR (occurrence: FR)
  Receive Date: 20220211
  Receipt Date: 20220211
  Transmission Date: 20220423
  Serious: Yes (Death, Other)
  Sender: FDA-Public Use
  Company Number: FR-SA-SAC20220210000977

PATIENT
  Age: 2 Year
  Sex: Male

DRUGS (1)
  1. ALDURAZYME [Suspect]
     Active Substance: LARONIDASE
     Indication: Mucopolysaccharidosis I
     Dosage: UNK
     Dates: start: 2021

REACTIONS (5)
  - Cerebral haemorrhage [Fatal]
  - Transplant rejection [Fatal]
  - Haemorrhage [Unknown]
  - Respiratory distress [Unknown]
  - Resuscitation [Unknown]

NARRATIVE: CASE EVENT DATE: 20210101
